FAERS Safety Report 6690452-9 (Version None)
Quarter: 2010Q2

REPORT INFORMATION
  Report Type: 
  Country: None (occurrence: None)
  Receive Date: 20100421
  Receipt Date: 20100208
  Transmission Date: 20101027
  Serious: No
  Sender: FDA-Public Use
  Company Number: US-ASTRAZENECA-2010SE05699

PATIENT
  Age: 79 Year
  Sex: Male
  Weight: 165 kg

DRUGS (1)
  1. CASODEX [Suspect]
     Indication: PROSTATE CANCER
     Route: 048
     Dates: start: 20090601

REACTIONS (3)
  - HYDRONEPHROSIS [None]
  - RENAL FUNCTION TEST ABNORMAL [None]
  - RENAL IMPAIRMENT [None]
